FAERS Safety Report 16676073 (Version 1)
Quarter: 2019Q3

REPORT INFORMATION
  Report Type: Report from Study
  Country: CN (occurrence: CN)
  Receive Date: 20190807
  Receipt Date: 20190807
  Transmission Date: 20191004
  Serious: Yes (Death, Hospitalization)
  Sender: FDA-Public Use
  Company Number: CN-ROCHE-1964405

PATIENT
  Weight: 51 kg

DRUGS (1)
  1. AVASTIN [Suspect]
     Active Substance: BEVACIZUMAB
     Indication: RECTAL CANCER
     Route: 041
     Dates: start: 20150806

REACTIONS (4)
  - Intestinal obstruction [Unknown]
  - Organ failure [Fatal]
  - Nasopharyngitis [Unknown]
  - Feeding disorder [Not Recovered/Not Resolved]
